FAERS Safety Report 7925129-2 (Version None)
Quarter: 2011Q4

REPORT INFORMATION
  Report Type: 
  Country: None (occurrence: None)
  Receive Date: 20111118
  Receipt Date: 20110401
  Transmission Date: 20120403
  Serious: No
  Sender: FDA-Public Use
  Company Number: US-AMGEN-USASP2011017612

PATIENT
  Age: 56 Year
  Sex: Female
  Weight: 114 kg

DRUGS (5)
  1. HYDROCHLOROTH [Concomitant]
     Dosage: 12.5 MG, UNK
  2. VITAMIN D [Concomitant]
     Dosage: 400 MG, UNK
     Route: 048
  3. ENBREL [Suspect]
     Indication: PRODUCT USED FOR UNKNOWN INDICATION
     Dosage: 50 MG, QWK
     Route: 058
  4. FOLIC ACID [Concomitant]
     Dosage: 1 MG, UNK
  5. METHOTREXATE [Concomitant]
     Dosage: 2.5 MG, UNK

REACTIONS (1)
  - DRUG INEFFECTIVE [None]
